FAERS Safety Report 25611119 (Version 1)
Quarter: 2025Q3

REPORT INFORMATION
  Report Type: Spontaneous
  Country: US (occurrence: None)
  Receive Date: 20250725
  Receipt Date: 20250725
  Transmission Date: 20251020
  Serious: Yes (Hospitalization)
  Sender: FDA-CTU
  Company Number: None

PATIENT
  Age: 45 Year
  Sex: Female

DRUGS (1)
  1. KESIMPTA [Suspect]
     Active Substance: OFATUMUMAB

REACTIONS (7)
  - Fall [None]
  - Dizziness [None]
  - Amnesia [None]
  - Paraesthesia [None]
  - Peripheral swelling [None]
  - Swelling face [None]
  - Burning sensation [None]
